FAERS Safety Report 21484014 (Version 2)
Quarter: 2023Q1

REPORT INFORMATION
  Report Type: Report from Study
  Country: US (occurrence: US)
  Receive Date: 20221020
  Receipt Date: 20230203
  Transmission Date: 20230418
  Serious: No
  Sender: FDA-Public Use
  Company Number: US-ABBVIE-4164700

PATIENT
  Age: 83 Year
  Sex: Female

DRUGS (8)
  1. SKYRIZI [Suspect]
     Active Substance: RISANKIZUMAB-RZAA
     Indication: Psoriasis
     Route: 058
     Dates: start: 202206
  2. Oxybutin (Oxybutynin hydrochloride) [Concomitant]
     Indication: Product used for unknown indication
     Route: 048
  3. Triamcinolone (Triamcinolone diacetate) [Concomitant]
     Indication: Product used for unknown indication
  4. Tacrolimus (Tacrolimus monohydrate) [Concomitant]
     Indication: Product used for unknown indication
  5. ATORVASTATIN CALCIUM [Concomitant]
     Active Substance: ATORVASTATIN CALCIUM
     Indication: Product used for unknown indication
     Route: 048
  6. LOSARTAN POTASSIUM [Concomitant]
     Active Substance: LOSARTAN POTASSIUM
     Indication: Product used for unknown indication
     Route: 048
  7. Carvedilolo (Carvedilol) [Concomitant]
     Indication: Product used for unknown indication
     Route: 048
  8. Amlodipine besylate 10 (Amlodipine besilate) [Concomitant]
     Indication: Product used for unknown indication
     Route: 048

REACTIONS (2)
  - Diarrhoea [Recovered/Resolved]
  - Diarrhoea [Recovering/Resolving]

NARRATIVE: CASE EVENT DATE: 20220627
